FAERS Safety Report 6261326-2 (Version None)
Quarter: 2009Q3

REPORT INFORMATION
  Report Type: 
  Country: None (occurrence: None)
  Receive Date: 20090709
  Receipt Date: 20090522
  Transmission Date: 20100115
  Serious: No
  Sender: FDA-Public Use
  Company Number: US-KINGPHARMUSA00001-K200900637

PATIENT
  Sex: Female
  Weight: 92.517 kg

DRUGS (10)
  1. LEVOXYL [Suspect]
     Indication: HYPOTHYROIDISM
     Dosage: 137 MCG, QD
     Route: 048
  2. LEVOXYL [Suspect]
     Indication: AUTOIMMUNE THYROIDITIS
     Dosage: 150 MCG, QD
     Route: 048
  3. PLAQUENIL [Concomitant]
     Indication: MIXED CONNECTIVE TISSUE DISEASE
     Dosage: UNK
     Route: 048
  4. MOBIC [Concomitant]
     Indication: INFLAMMATION
     Dosage: 7.5 MG, QD
     Route: 048
  5. MOBIC [Concomitant]
     Indication: ARTHRITIS
  6. MOBIC [Concomitant]
     Indication: MIXED CONNECTIVE TISSUE DISEASE
  7. ESTROGENS CONJUGATED W/PROGESTERONE [Concomitant]
     Indication: HORMONE REPLACEMENT THERAPY
     Dosage: UNK
     Route: 048
  8. ERYTHROMYCIN [Concomitant]
     Indication: IMPAIRED GASTRIC EMPTYING
     Dosage: UNK
     Route: 048
  9. DARVOCET [Concomitant]
     Dosage: UNK
     Route: 048
  10. PROTONIX [Concomitant]
     Indication: IMPAIRED GASTRIC EMPTYING
     Dosage: 40 MG, BID
     Route: 048

REACTIONS (4)
  - ALOPECIA [None]
  - BLOOD THYROID STIMULATING HORMONE INCREASED [None]
  - FATIGUE [None]
  - WEIGHT INCREASED [None]
